FAERS Safety Report 10878925 (Version 1)
Quarter: 2015Q1

REPORT INFORMATION
  Report Type: Spontaneous
  Country: GB (occurrence: GB)
  Receive Date: 20150302
  Receipt Date: 20150302
  Transmission Date: 20150721
  Serious: Yes (Other)
  Sender: FDA-Public Use
  Company Number: PHHY2015GB023562

PATIENT
  Age: 26 Year
  Sex: Male

DRUGS (1)
  1. FLUOXETINE [Suspect]
     Active Substance: FLUOXETINE\FLUOXETINE HYDROCHLORIDE
     Indication: PRODUCT USED FOR UNKNOWN INDICATION
     Dosage: 20 MG, UNK
     Route: 065

REACTIONS (8)
  - Alcoholism [Unknown]
  - Insomnia [Unknown]
  - Tremor [Unknown]
  - Emotional disorder [Unknown]
  - Euphoric mood [Unknown]
  - Abnormal behaviour [Unknown]
  - Hypersexuality [Unknown]
  - Impulsive behaviour [Unknown]
